FAERS Safety Report 19883775 (Version 1)
Quarter: 2021Q3

REPORT INFORMATION
  Report Type: Spontaneous
  Country: US (occurrence: US)
  Receive Date: 20210927
  Receipt Date: 20210927
  Transmission Date: 20211014
  Serious: Yes (Death)
  Sender: FDA-Public Use
  Company Number: US-BEH-2021136287

PATIENT
  Age: 34 Year
  Sex: Male

DRUGS (1)
  1. HIZENTRA [Suspect]
     Active Substance: HUMAN IMMUNOGLOBULIN G
     Indication: HYPOGAMMAGLOBULINAEMIA
     Dosage: 17 GRAM, QOW
     Route: 058
     Dates: start: 202105, end: 20210920

REACTIONS (1)
  - Death [Fatal]

NARRATIVE: CASE EVENT DATE: 20210920
